FAERS Safety Report 5712215-0 (Version None)
Quarter: 2008Q2

REPORT INFORMATION
  Report Type: 
  Country: None (occurrence: None)
  Receive Date: 20080422
  Receipt Date: 20080414
  Transmission Date: 20081010
  Serious: Yes (Death)
  Sender: FDA-Public Use
  Company Number: FR-ELI_LILLY_AND_COMPANY-FR200804004142

PATIENT
  Age: 25 Year
  Sex: Female

DRUGS (5)
  1. ZYPREXA [Suspect]
     Indication: ABNORMAL BEHAVIOUR
     Dosage: 10 MG, 2/D
     Route: 048
     Dates: start: 20080401
  2. DEPAKOTE [Concomitant]
     Indication: ABNORMAL BEHAVIOUR
     Dosage: 1500 MG, DAILY (1/D)
     Route: 048
     Dates: start: 20080401
  3. RIVOTRIL [Concomitant]
     Indication: ABNORMAL BEHAVIOUR
     Dosage: 6 MG, DAILY (1/D)
     Route: 048
     Dates: start: 20080401
  4. TERCIAN [Concomitant]
     Indication: ABNORMAL BEHAVIOUR
     Dosage: 350 D/F, DAILY (1/D)
     Route: 048
     Dates: start: 20080401
  5. TRIMEPRAZINE TAB [Concomitant]
     Indication: ABNORMAL BEHAVIOUR
     Dosage: 50 D/F, DAILY (1/D)
     Route: 048
     Dates: start: 20080401

REACTIONS (1)
  - DEATH [None]
